FAERS Safety Report 21161497 (Version 1)
Quarter: 2022Q3

REPORT INFORMATION
  Report Type: Spontaneous
  Country: US (occurrence: US)
  Receive Date: 20220802
  Receipt Date: 20220802
  Transmission Date: 20221026
  Serious: No
  Sender: FDA-Public Use
  Company Number: US-ELI_LILLY_AND_COMPANY-US202207009093

PATIENT
  Sex: Male

DRUGS (1)
  1. BEBTELOVIMAB [Suspect]
     Active Substance: BEBTELOVIMAB
     Indication: COVID-19
     Dosage: UNK, UNKNOWN
     Route: 065

REACTIONS (5)
  - Expired product administered [Unknown]
  - Oropharyngeal pain [Unknown]
  - Cough [Unknown]
  - Rhinorrhoea [Unknown]
  - COVID-19 [Unknown]
